FAERS Safety Report 6653413-1 (Version None)
Quarter: 2010Q1

REPORT INFORMATION
  Report Type: 
  Country: None (occurrence: None)
  Receive Date: 20100326
  Receipt Date: 20100317
  Transmission Date: 20100710
  Serious: Yes (Hospitalization, Other)
  Sender: FDA-Public Use
  Company Number: PHEH2010US03184

PATIENT
  Age: 73 Year
  Sex: Female

DRUGS (8)
  1. RECLAST [Suspect]
     Dosage: 5MG/100ML ONCE YEARLY
     Route: 042
     Dates: start: 20100215
  2. ALLEGRA [Concomitant]
  3. ZYRTEC [Concomitant]
  4. SULFASALAZINE [Concomitant]
     Dosage: 2000 MG, QD
  5. LIPITOR [Concomitant]
     Dosage: 20 MG, UNK
  6. ACEON [Concomitant]
     Dosage: 4 MG, BID
  7. DYNACIRC [Concomitant]
     Dosage: 5 MG, UNK
  8. LYRICA [Concomitant]
     Dosage: 50 MG, QD

REACTIONS (4)
  - DEEP VEIN THROMBOSIS [None]
  - INFLUENZA LIKE ILLNESS [None]
  - MASS [None]
  - PULMONARY EMBOLISM [None]
